FAERS Safety Report 13388477 (Version 3)
Quarter: 2017Q2

REPORT INFORMATION
  Report Type: Spontaneous
  Country: JP (occurrence: JP)
  Receive Date: 20170330
  Receipt Date: 20170612
  Transmission Date: 20170830
  Serious: Yes (Death, Hospitalization, Disabling, Other)
  Sender: FDA-Public Use
  Company Number: JP-ELI_LILLY_AND_COMPANY-JP201703011583

PATIENT
  Age: 59 Year
  Sex: Male
  Weight: 50 kg

DRUGS (8)
  1. ERBITUX [Suspect]
     Active Substance: CETUXIMAB
     Dosage: 250 MG/M2, WEEKLY (1/W)
     Route: 041
     Dates: start: 20160719, end: 20160809
  2. EMEND [Concomitant]
     Active Substance: APREPITANT
     Indication: PROPHYLAXIS OF NAUSEA AND VOMITING
     Dosage: 125 MG, UNK
     Route: 048
  3. ERBITUX [Suspect]
     Active Substance: CETUXIMAB
     Indication: TONGUE CANCER RECURRENT
     Dosage: 400 MG/M2, UNKNOWN
     Route: 041
     Dates: start: 20160712
  4. 5-FU                               /00098801/ [Concomitant]
     Active Substance: FLUOROURACIL
     Indication: TONGUE CARCINOMA STAGE IV
     Dosage: 1000 MG/M2, UNK
     Route: 041
     Dates: start: 20160712, end: 20160802
  5. ELITEN [Concomitant]
     Indication: PROPHYLAXIS OF NAUSEA AND VOMITING
     Dosage: 10 MG, UNKNOWN
     Route: 042
  6. 5-FU                               /00098801/ [Concomitant]
     Active Substance: FLUOROURACIL
     Indication: SQUAMOUS CELL CARCINOMA OF HEAD AND NECK
     Dosage: UNK UNK, UNKNOWN
     Route: 065
  7. DEXART [Concomitant]
     Active Substance: DEXAMETHASONE SODIUM PHOSPHATE
     Indication: PROPHYLAXIS OF NAUSEA AND VOMITING
     Dosage: 10 MG, UNKNOWN
     Route: 042
  8. CISPLATIN. [Suspect]
     Active Substance: CISPLATIN
     Indication: TONGUE CANCER RECURRENT
     Dosage: 75 MG/M2, ONCE IN THREE WEEKS
     Route: 041
     Dates: start: 20160712, end: 20160802

REACTIONS (11)
  - Dysphagia [Unknown]
  - Incontinence [Unknown]
  - Pneumonia aspiration [Recovered/Resolved]
  - Drug-induced liver injury [Unknown]
  - Neutrophil count decreased [Recovered/Resolved]
  - Renal impairment [Unknown]
  - Lymphangiosis carcinomatosa [Fatal]
  - Bone marrow failure [Unknown]
  - Personality disorder [Unknown]
  - Cognitive disorder [Not Recovered/Not Resolved]
  - Dermatitis acneiform [Recovering/Resolving]

NARRATIVE: CASE EVENT DATE: 2016
